FAERS Safety Report 6678605-7 (Version None)
Quarter: 2010Q2

REPORT INFORMATION
  Report Type: 
  Country: None (occurrence: None)
  Receive Date: 20100412
  Receipt Date: 20100412
  Transmission Date: 20101027
  Serious: Yes (Hospitalization)
  Sender: FDA-Public Use
  Company Number: None

PATIENT
  Age: 46 Year
  Sex: Female
  Weight: 77.2 kg

DRUGS (11)
  1. LOVENOX [Suspect]
     Indication: PULMONARY EMBOLISM
     Dosage: 80MG SQ BID
     Route: 058
     Dates: start: 20091123, end: 20091128
  2. AMBIEN [Concomitant]
  3. WARF [Concomitant]
  4. MIRALAX [Concomitant]
  5. MECLIZINE [Concomitant]
  6. PRILOSEC [Concomitant]
  7. RANITIDINE [Concomitant]
  8. ONDANSETRON [Concomitant]
  9. IRON [Concomitant]
  10. VITAMIN B-12 [Concomitant]
  11. LACTULOSE [Concomitant]

REACTIONS (2)
  - HAEMATURIA [None]
  - INTERNATIONAL NORMALISED RATIO DECREASED [None]
